FAERS Safety Report 22208115 (Version 1)
Quarter: 2023Q2

REPORT INFORMATION
  Report Type: Spontaneous
  Country: US (occurrence: None)
  Receive Date: 20230412
  Receipt Date: 20230412
  Transmission Date: 20230721
  Serious: Yes (Other)
  Sender: FDA-Public Use
  Company Number: None

PATIENT
  Age: 75 Year
  Sex: Female

DRUGS (1)
  1. METOPROLOL SUCCINATE [Suspect]
     Active Substance: METOPROLOL SUCCINATE
     Indication: Blood pressure measurement
     Dosage: FREQUENCY : DAILY;?
     Route: 048

REACTIONS (3)
  - Rash [None]
  - Blister [None]
  - Raynaud^s phenomenon [None]

NARRATIVE: CASE EVENT DATE: 20230411
